FAERS Safety Report 23987447 (Version 2)
Quarter: 2024Q3

REPORT INFORMATION
  Report Type: Spontaneous
  Country: US (occurrence: US)
  Receive Date: 20240618
  Receipt Date: 20240902
  Transmission Date: 20241016
  Serious: Yes (Hospitalization)
  Sender: BAUSCH AND LOMB
  Company Number: US-BAUSCHBL-2024BNL028523

PATIENT
  Age: 88 Year
  Sex: Male

DRUGS (1)
  1. LATANOPROST [Suspect]
     Active Substance: LATANOPROST
     Indication: Product used for unknown indication
     Route: 047

REACTIONS (4)
  - Hospitalisation [Unknown]
  - Wrong technique in product usage process [Unknown]
  - Product closure removal difficult [Unknown]
  - Product packaging quantity issue [Unknown]
